FAERS Safety Report 4492697-5 (Version None)
Quarter: 2004Q4

REPORT INFORMATION
  Report Type: 
  Country: None (occurrence: None)
  Receive Date: 20041029
  Receipt Date: 20041022
  Transmission Date: 20050328
  Serious: Yes (Other)
  Sender: FDA-Public Use
  Company Number: 2004230329US

PATIENT
  Age: 71 Year
  Sex: Female
  Weight: 53.1 kg

DRUGS (2)
  1. CELEBREX [Suspect]
     Indication: ARTHRITIS
     Dosage: 100 MG, QD, ORAL; 200 MG, QD, ORAL
     Route: 048
  2. CRESTOR [Suspect]
     Indication: BLOOD CHOLESTEROL INCREASED
     Dosage: 10 MG, QD
     Dates: start: 20040621, end: 20040701

REACTIONS (10)
  - ASTHENIA [None]
  - BLOOD CHOLESTEROL INCREASED [None]
  - CIRCULATORY COLLAPSE [None]
  - CONDITION AGGRAVATED [None]
  - FALL [None]
  - LIMB INJURY [None]
  - LOSS OF CONSCIOUSNESS [None]
  - SCOLIOSIS [None]
  - SYNCOPE [None]
  - VARICOSE VEIN [None]
